FAERS Safety Report 8077429-6 (Version None)
Quarter: 2012Q1

REPORT INFORMATION
  Report Type: 
  Country: None (occurrence: None)
  Receive Date: 20120127
  Receipt Date: 20120125
  Transmission Date: 20120608
  Serious: Yes (Death)
  Sender: FDA-Public Use
  Company Number: PHHY2012NL006777

PATIENT
  Sex: Male

DRUGS (4)
  1. FUROSEMIDE [Concomitant]
     Dosage: 20 MG, BID
  2. OMEPRAZOLE [Concomitant]
  3. TOBI [Suspect]
     Indication: BRONCHIECTASIS
  4. ANTIHYPERTENSIVE DRUGS [Concomitant]

REACTIONS (1)
  - DEATH [None]
